FAERS Safety Report 15479830 (Version 5)
Quarter: 2020Q2

REPORT INFORMATION
  Report Type: Report from Study
  Country: US (occurrence: US)
  Receive Date: 20181009
  Receipt Date: 20200512
  Transmission Date: 20200713
  Serious: Yes (Hospitalization)
  Sender: FDA-Public Use
  Company Number: US-ACTELION-A-US2018-179806

PATIENT
  Sex: Female
  Weight: 72.56 kg

DRUGS (3)
  1. UPTRAVI [Suspect]
     Active Substance: SELEXIPAG
     Indication: PULMONARY ARTERIAL HYPERTENSION
     Dosage: 800 MCG, BID
     Route: 048
  2. UPTRAVI [Suspect]
     Active Substance: SELEXIPAG
     Dosage: 1600 MCG, BID
     Route: 048
  3. AMLODIPINE [Concomitant]
     Active Substance: AMLODIPINE BESYLATE

REACTIONS (11)
  - Hepatic cirrhosis [Unknown]
  - Confusional state [Unknown]
  - Pneumonia [Unknown]
  - Rib fracture [Unknown]
  - Gastrointestinal disorder [Unknown]
  - Ammonia increased [Unknown]
  - Pulmonary arterial pressure increased [Unknown]
  - Pulmonary arterial hypertension [Unknown]
  - Chest pain [Unknown]
  - Hospitalisation [Unknown]
  - Product dose omission [Unknown]
